FAERS Safety Report 7917333-4 (Version None)
Quarter: 2011Q4

REPORT INFORMATION
  Report Type: 
  Country: None (occurrence: None)
  Receive Date: 20111116
  Receipt Date: 20111109
  Transmission Date: 20120403
  Serious: Yes (Hospitalization)
  Sender: FDA-Public Use
  Company Number: SE-B.I. PHARMACEUTICALS,INC./RIDGEFIELD-2011-SW-00464SW

PATIENT
  Sex: Female

DRUGS (8)
  1. COMBIVENT [Suspect]
     Dosage: FORM: NEBULISER SOLUTION, STRENGHT 0.5MG/2.5MG
     Dates: start: 20110923
  2. WARFARIN SODIUM [Concomitant]
  3. AMOXICILLIN [Suspect]
     Route: 048
     Dates: start: 20110923
  4. PRIMODIUM [Concomitant]
  5. PREDNISOLONE [Suspect]
     Dates: start: 20110923
  6. OMEPRAZOLE [Suspect]
     Dosage: 20 MGD
     Route: 048
     Dates: start: 20110923, end: 20110928
  7. ZOPIKLON MYLAN [Concomitant]
  8. COZAAR [Concomitant]

REACTIONS (1)
  - TRANSAMINASES INCREASED [None]
